FAERS Safety Report 18050253 (Version 1)
Quarter: 2020Q3

REPORT INFORMATION
  Report Type: Spontaneous
  Country: FR (occurrence: FR)
  Receive Date: 20200721
  Receipt Date: 20200721
  Transmission Date: 20201103
  Serious: Yes (Other)
  Sender: FDA-Public Use
  Company Number: NVSC2020FR199240

PATIENT
  Age: 98 Year
  Sex: Female
  Weight: 67 kg

DRUGS (3)
  1. OXAZEPAM. [Suspect]
     Active Substance: OXAZEPAM
     Indication: ANXIETY DISORDER
     Dosage: 5 MG, QD
     Route: 048
     Dates: end: 20200605
  2. AMISULPRIDE [Suspect]
     Active Substance: AMISULPRIDE
     Indication: ANXIETY DISORDER
     Dosage: 30 MG, QD
     Route: 048
     Dates: end: 20200605
  3. LOVENOX [Concomitant]
     Active Substance: ENOXAPARIN SODIUM
     Indication: THROMBOSIS PROPHYLAXIS
     Dosage: 0.4 ML, QD
     Route: 058
     Dates: start: 20200522

REACTIONS (1)
  - Thrombocytopenia [Recovered/Resolved]

NARRATIVE: CASE EVENT DATE: 20200601
